FAERS Safety Report 8496438-6 (Version None)
Quarter: 2012Q3

REPORT INFORMATION
  Report Type: 
  Country: None (occurrence: None)
  Receive Date: 20120709
  Receipt Date: 20120629
  Transmission Date: 20120928
  Serious: Yes (Hospitalization)
  Sender: FDA-Public Use
  Company Number: JP-BRISTOL-MYERS SQUIBB COMPANY-16639601

PATIENT
  Age: 82 Year
  Sex: Male

DRUGS (4)
  1. METFORMIN HCL [Suspect]
     Indication: DIABETES MELLITUS
     Dosage: INTERRUPTED ON 15MAY2012 AND RESTARTED-ONG
     Route: 048
     Dates: start: 20120301
  2. JANUVIA [Suspect]
     Indication: DIABETES MELLITUS
     Route: 048
     Dates: start: 20120301, end: 20120515
  3. DONEPEZIL HCL [Concomitant]
     Indication: DEMENTIA
     Route: 048
     Dates: start: 20120515
  4. ENALAPRIL MALEATE [Concomitant]
     Indication: DIABETES MELLITUS
     Route: 048
     Dates: start: 20120301

REACTIONS (1)
  - APLASIA PURE RED CELL [None]
